FAERS Safety Report 14208382 (Version 1)
Quarter: 2017Q4

REPORT INFORMATION
  Report Type: Spontaneous
  Country: US (occurrence: US)
  Receive Date: 20171121
  Receipt Date: 20171121
  Transmission Date: 20180321
  Serious: Yes (Disabling)
  Sender: FDA-Public Use
  Company Number: None

PATIENT
  Age: 34 Year
  Sex: Female
  Weight: 90 kg

DRUGS (1)
  1. CLOBEX [Suspect]
     Active Substance: CLOBETASOL PROPIONATE
     Indication: RASH

REACTIONS (14)
  - Insomnia [None]
  - Pruritus [None]
  - Mood altered [None]
  - Myalgia [None]
  - Hormone level abnormal [None]
  - Muscular weakness [None]
  - Skin disorder [None]
  - Skin fissures [None]
  - Pain of skin [None]
  - Skin burning sensation [None]
  - Steroid withdrawal syndrome [None]
  - Formication [None]
  - Urticaria [None]
  - Erythema [None]

NARRATIVE: CASE EVENT DATE: 20140731
